FAERS Safety Report 12902208 (Version 6)
Quarter: 2019Q4

REPORT INFORMATION
  Report Type: Spontaneous
  Country: US (occurrence: US)
  Receive Date: 20161102
  Receipt Date: 20191202
  Transmission Date: 20200122
  Serious: Yes (Other)
  Sender: FDA-Public Use
  Company Number: US-PFIZER INC-2016506536

PATIENT
  Age: 62 Year
  Sex: Male

DRUGS (7)
  1. LYRICA [Suspect]
     Active Substance: PREGABALIN
     Indication: NEURALGIA
  2. LYRICA [Suspect]
     Active Substance: PREGABALIN
     Indication: ROUTINE HEALTH MAINTENANCE
  3. CLONAZEPAM. [Concomitant]
     Active Substance: CLONAZEPAM
     Dosage: 1 MG, 3X/DAY
  4. HYDROCODONE [Concomitant]
     Active Substance: HYDROCODONE
     Dosage: 10-325MG, EVERY 6HOURS AS NEEDED
  5. OXYBUTYNIN. [Concomitant]
     Active Substance: OXYBUTYNIN CHLORIDE
     Dosage: 5 MG, DAILY
  6. LYRICA [Suspect]
     Active Substance: PREGABALIN
     Indication: BACK DISORDER
     Dosage: 200 MG, 3X/DAY
     Route: 048
  7. LYRICA [Suspect]
     Active Substance: PREGABALIN
     Indication: PAIN IN EXTREMITY
     Dosage: 200 MG, 3X/DAY
     Route: 048

REACTIONS (5)
  - Middle insomnia [Unknown]
  - Anxiety [Unknown]
  - Drug withdrawal syndrome [Unknown]
  - Insomnia [Unknown]
  - Drug dependence [Unknown]
